FAERS Safety Report 6903193-7 (Version None)
Quarter: 2010Q3

REPORT INFORMATION
  Report Type: 
  Country: None (occurrence: None)
  Receive Date: 20100803
  Receipt Date: 20080902
  Transmission Date: 20110219
  Serious: No
  Sender: FDA-Public Use
  Company Number: US-PFIZER INC-2008048285

PATIENT
  Sex: Female
  Weight: 45.4 kg

DRUGS (8)
  1. LYRICA [Suspect]
     Indication: FIBROMYALGIA
     Dates: start: 20080501
  2. LYRICA [Suspect]
     Indication: HERPES ZOSTER
  3. FLAGYL [Suspect]
     Indication: VAGINAL INFECTION
     Dates: start: 20080101, end: 20080101
  4. PERCOCET [Suspect]
  5. THYROID TAB [Concomitant]
  6. VITAMIN TAB [Concomitant]
  7. XANAX [Concomitant]
  8. ACETYLSALICYLIC ACID SRT [Concomitant]

REACTIONS (15)
  - ASTHENIA [None]
  - CONSTIPATION [None]
  - COORDINATION ABNORMAL [None]
  - DISTURBANCE IN ATTENTION [None]
  - DIZZINESS [None]
  - DRUG INEFFECTIVE [None]
  - DRY MOUTH [None]
  - DYSGEUSIA [None]
  - MUSCULAR WEAKNESS [None]
  - MYALGIA [None]
  - NAUSEA [None]
  - OEDEMA PERIPHERAL [None]
  - SKIN BURNING SENSATION [None]
  - VAGINAL INFECTION [None]
  - VISION BLURRED [None]
